FAERS Safety Report 22084047 (Version 3)
Quarter: 2023Q1

REPORT INFORMATION
  Report Type: Spontaneous
  Country: HR (occurrence: HR)
  Receive Date: 20230310
  Receipt Date: 20230317
  Transmission Date: 20230418
  Serious: Yes (Other)
  Sender: FDA-Public Use
  Company Number: None

PATIENT

DRUGS (3)
  1. DICLOFENAC SODIUM [Suspect]
     Active Substance: DICLOFENAC SODIUM
     Indication: Suicide attempt
     Dosage: 1000 MG, QD
     Route: 048
     Dates: start: 20230117, end: 20230117
  2. AMILORIDE HYDROCHLORIDE\METHYCLOTHIAZIDE [Suspect]
     Active Substance: AMILORIDE HYDROCHLORIDE\METHYCLOTHIAZIDE
     Indication: Product used for unknown indication
     Dosage: 10 DF, QD (1 DF = 1 TABLET)
     Route: 048
     Dates: start: 20230117, end: 20230117
  3. BROMAZEPAM [Suspect]
     Active Substance: BROMAZEPAM
     Indication: Suicide attempt
     Dosage: 27 MG, QD
     Route: 048
     Dates: start: 20230117, end: 20230117

REACTIONS (4)
  - Bradykinesia [Unknown]
  - Gait disturbance [Unknown]
  - Suicide attempt [Unknown]
  - Intentional overdose [Unknown]

NARRATIVE: CASE EVENT DATE: 20230117
